FAERS Safety Report 5840223-8 (Version None)
Quarter: 2008Q3

REPORT INFORMATION
  Report Type: 
  Country: None (occurrence: None)
  Receive Date: 20080807
  Receipt Date: 20080807
  Transmission Date: 20090109
  Serious: Yes (Hospitalization)
  Sender: FDA-Public Use
  Company Number: None

PATIENT
  Sex: Female
  Weight: 66.9 kg

DRUGS (9)
  1. TAXOL [Suspect]
     Dosage: 1146 MG
  2. ACYCLOVIR SODIUM [Concomitant]
  3. ATARAX [Concomitant]
  4. ATIVAN [Concomitant]
  5. COMPAZINE (PROCHLORPERAZINE MALEATE) [Concomitant]
  6. DECADRON [Concomitant]
  7. NEULASTA [Concomitant]
  8. VICODIN [Concomitant]
  9. ZOFRAN [Concomitant]

REACTIONS (2)
  - FLUID OVERLOAD [None]
  - PNEUMONITIS CHEMICAL [None]
